FAERS Safety Report 19728382 (Version 1)
Quarter: 2021Q3

REPORT INFORMATION
  Report Type: Spontaneous
  Country: US (occurrence: US)
  Receive Date: 20210820
  Receipt Date: 20210820
  Transmission Date: 20211014
  Serious: No
  Sender: FDA-Public Use
  Company Number: US-GLAXOSMITHKLINE-USCH2021AMR054566

PATIENT
  Sex: Female

DRUGS (7)
  1. MOTRIN [Suspect]
     Active Substance: IBUPROFEN
     Indication: ABDOMINAL DISCOMFORT
  2. MOTRIN [Suspect]
     Active Substance: IBUPROFEN
     Indication: ABDOMINAL DISTENSION
  3. GAS?X [Suspect]
     Active Substance: DIMETHICONE
     Indication: ABDOMINAL PAIN UPPER
  4. GAS?X [Suspect]
     Active Substance: DIMETHICONE
     Indication: ABDOMINAL DISTENSION
  5. MOTRIN [Suspect]
     Active Substance: IBUPROFEN
     Indication: ABDOMINAL PAIN UPPER
  6. GAS?X [Suspect]
     Active Substance: DIMETHICONE
     Indication: ABDOMINAL DISCOMFORT
  7. MOTRIN [Suspect]
     Active Substance: IBUPROFEN
     Indication: CHILLS

REACTIONS (2)
  - Drug ineffective for unapproved indication [Unknown]
  - Product use in unapproved indication [Unknown]
